FAERS Safety Report 8882807 (Version 1)
Quarter: 2012Q4

REPORT INFORMATION
  Report Type: 
  Country: US (occurrence: US)
  Receive Date: 20121102
  Receipt Date: 20121102
  Transmission Date: 20130627
  Serious: No
  Sender: FDA-Public Use
  Company Number: US-ASTRAZENECA-2011SE66519

PATIENT
  Age: 74 Year
  Sex: Male
  Weight: 81.6 kg

DRUGS (8)
  1. CRESTOR [Suspect]
     Indication: BLOOD CHOLESTEROL
     Route: 048
     Dates: start: 2006, end: 201110
  2. KATAFLAM [Concomitant]
  3. NAPROXEN [Concomitant]
     Indication: MUSCLE RELAXANT THERAPY
  4. LOUDIN [Concomitant]
  5. LIDODERM [Concomitant]
  6. NEUROTIN [Concomitant]
  7. ZESTRIL [Concomitant]
     Indication: BLOOD PRESSURE
  8. PRINDIDE-DESTOREPIC [Concomitant]
     Indication: BLOOD PRESSURE

REACTIONS (6)
  - Balance disorder [Unknown]
  - Blood cholesterol abnormal [Unknown]
  - Myalgia [Unknown]
  - Pain in extremity [Unknown]
  - Arthralgia [Unknown]
  - Drug dose omission [Unknown]
